FAERS Safety Report 25920056 (Version 1)
Quarter: 2025Q4

REPORT INFORMATION
  Report Type: Spontaneous
  Country: US (occurrence: None)
  Receive Date: 20251014
  Receipt Date: 20251014
  Transmission Date: 20260117
  Serious: Yes (Hospitalization, Other)
  Sender: FDA-CTU
  Company Number: None

PATIENT
  Age: 58 Year
  Sex: Female
  Weight: 196 kg

DRUGS (2)
  1. TAXOTERE [Suspect]
     Active Substance: DOCETAXEL
     Dates: end: 20250926
  2. GEMCITABINE HYDROCHLORIDE [Suspect]
     Active Substance: GEMCITABINE HYDROCHLORIDE
     Dates: end: 20250926

REACTIONS (15)
  - Abdominal pain [None]
  - Bacterial infection [None]
  - Sepsis [None]
  - Hypoxia [None]
  - Sinus tachycardia [None]
  - Chest discomfort [None]
  - Blood lactic acid increased [None]
  - Blood glucose increased [None]
  - Lipase increased [None]
  - Fibrin D dimer increased [None]
  - Troponin T increased [None]
  - Myocardial necrosis marker increased [None]
  - Pulmonary oedema [None]
  - Ejection fraction decreased [None]
  - Orthostatic hypotension [None]

NARRATIVE: CASE EVENT DATE: 20251002
